FAERS Safety Report 11888369 (Version 1)
Quarter: 2016Q1

REPORT INFORMATION
  Report Type: Spontaneous
  Country: US (occurrence: None)
  Receive Date: 20160104
  Receipt Date: 20160104
  Transmission Date: 20160526
  Serious: Yes (Hospitalization)
  Sender: FDA-Public Use
  Company Number: None

PATIENT
  Age: 50 Year
  Sex: Female
  Weight: 70.76 kg

DRUGS (4)
  1. D2 [Concomitant]
  2. MULTI VITAMIN [Concomitant]
     Active Substance: VITAMINS
  3. HYDROCORTISONE. [Concomitant]
     Active Substance: HYDROCORTISONE
  4. AZITHROMYCIN ANHYDROUS. [Suspect]
     Active Substance: AZITHROMYCIN ANHYDROUS
     Indication: SINUSITIS
     Route: 048
     Dates: start: 20151228, end: 20151228

REACTIONS (6)
  - Fatigue [None]
  - Hypertension [None]
  - Sensory disturbance [None]
  - Somnolence [None]
  - Heart rate increased [None]
  - Abdominal distension [None]

NARRATIVE: CASE EVENT DATE: 20151228
